FAERS Safety Report 6067748-7 (Version None)
Quarter: 2009Q1

REPORT INFORMATION
  Report Type: 
  Country: None (occurrence: None)
  Receive Date: 20090205
  Receipt Date: 20090130
  Transmission Date: 20090719
  Serious: Yes (Death)
  Sender: FDA-Public Use
  Company Number: US-GILEAD-2008-0018901

PATIENT
  Sex: Female

DRUGS (4)
  1. LETAIRIS [Suspect]
     Indication: PULMONARY ARTERIAL HYPERTENSION
  2. REVATIO [Concomitant]
  3. TREPROSTINIL [Concomitant]
  4. TYLENOL [Concomitant]

REACTIONS (1)
  - PULMONARY HAEMORRHAGE [None]
